FAERS Safety Report 6218037-9 (Version None)
Quarter: 2009Q2

REPORT INFORMATION
  Report Type: 
  Country: None (occurrence: None)
  Receive Date: 20090608
  Receipt Date: 20090525
  Transmission Date: 20091009
  Serious: Yes (Other)
  Sender: FDA-Public Use
  Company Number: IN-ROCHE-634633

PATIENT
  Age: 9 Year
  Sex: Male

DRUGS (7)
  1. ALL-TRANS-RETINOIC ACID [Suspect]
     Dosage: DOSAGE REPORTED AS 40 MG; FREQUENCY REPORTED AS DAILY.
     Route: 065
  2. ALL-TRANS-RETINOIC ACID [Suspect]
     Dosage: ON DAY 16; DOSAGE LOWERED
     Route: 065
  3. ALL-TRANS-RETINOIC ACID [Suspect]
     Dosage: ON DAY 19
     Route: 065
  4. ALL-TRANS-RETINOIC ACID [Suspect]
     Dosage: ADMINISTERED ON DAY 21
     Route: 065
  5. ALL-TRANS-RETINOIC ACID [Suspect]
     Dosage: RESTARTED AT A LOWER DOSE
     Route: 065
  6. ALL-TRANS-RETINOIC ACID [Suspect]
     Dosage: DOSAGE INCREASED
     Route: 065
  7. DAUNORUBICIN HCL [Suspect]
     Dosage: ADMINISTERED ON FIFTH DAY
     Route: 065

REACTIONS (1)
  - BENIGN INTRACRANIAL HYPERTENSION [None]
